FAERS Safety Report 7664908-6 (Version None)
Quarter: 2011Q3

REPORT INFORMATION
  Report Type: 
  Country: None (occurrence: None)
  Receive Date: 20110806
  Receipt Date: 20110715
  Transmission Date: 20111222
  Serious: No
  Sender: FDA-Public Use
  Company Number: US-ABBOTT-10P-163-0643200-00

PATIENT
  Sex: Male
  Weight: 108.96 kg

DRUGS (16)
  1. NIASPAN [Suspect]
     Indication: HIGH DENSITY LIPOPROTEIN DECREASED
  2. COUMADIN [Concomitant]
     Indication: PRODUCT USED FOR UNKNOWN INDICATION
  3. CRESTOR [Concomitant]
     Indication: HEART VALVE INCOMPETENCE
  4. MICARDIS [Concomitant]
     Indication: HEART VALVE INCOMPETENCE
  5. DRONEDARONE HCL [Concomitant]
     Indication: PRODUCT USED FOR UNKNOWN INDICATION
  6. DIGOXIN [Concomitant]
     Indication: PRODUCT USED FOR UNKNOWN INDICATION
  7. ZETIA [Concomitant]
     Indication: HEART VALVE INCOMPETENCE
  8. METOPROLOL TARTRATE [Concomitant]
     Indication: HEART VALVE INCOMPETENCE
  9. AMLODIPINE [Concomitant]
     Indication: HEART VALVE INCOMPETENCE
  10. XANAX [Concomitant]
     Indication: INSOMNIA
  11. AMBIEN [Concomitant]
     Indication: INSOMNIA
  12. NIASPAN [Suspect]
     Indication: BLOOD CHOLESTEROL INCREASED
     Dates: start: 20100427
  13. MULTAQ [Concomitant]
     Indication: ARRHYTHMIA
  14. FUROSEMIDE [Concomitant]
     Indication: FLUID RETENTION
  15. DILTIAZEM [Concomitant]
     Indication: HEART VALVE INCOMPETENCE
  16. ALLEGRA [Concomitant]
     Indication: HYPERSENSITIVITY

REACTIONS (4)
  - HYPERHIDROSIS [None]
  - PARAESTHESIA [None]
  - INSOMNIA [None]
  - FLUSHING [None]
